FAERS Safety Report 7507160-4 (Version None)
Quarter: 2011Q2

REPORT INFORMATION
  Report Type: 
  Country: None (occurrence: None)
  Receive Date: 20110526
  Receipt Date: 20110426
  Transmission Date: 20111010
  Serious: No
  Sender: FDA-Public Use
  Company Number: US-BAYER-2011-037645

PATIENT
  Age: 53 Year
  Sex: Female
  Weight: 70 kg

DRUGS (4)
  1. ALEVE [Suspect]
     Indication: BACK PAIN
     Dosage: BOTTLE COUNT 40S
     Route: 048
     Dates: start: 20110425
  2. ESTROVEN [Concomitant]
  3. CELEXA [Concomitant]
  4. ZOLPIDEM [Concomitant]

REACTIONS (1)
  - NO ADVERSE EVENT [None]
